FAERS Safety Report 9156783 (Version 1)
Quarter: 2013Q1

REPORT INFORMATION
  Report Type: Spontaneous
  Country: US (occurrence: None)
  Receive Date: 20130308
  Receipt Date: 20130308
  Transmission Date: 20140127
  Serious: Yes (Life-Threatening)
  Sender: FDA-Public Use
  Company Number: None

PATIENT
  Age: 53 Year
  Sex: Female
  Weight: 68.95 kg

DRUGS (1)
  1. HUMIRA 40MG 50 Q 14 DAYS [Suspect]
     Indication: RHEUMATOID ARTHRITIS
     Dates: start: 201111

REACTIONS (1)
  - B-cell lymphoma [None]
